FAERS Safety Report 11926056 (Version 3)
Quarter: 2019Q1

REPORT INFORMATION
  Report Type: Spontaneous
  Country: IE (occurrence: IE)
  Receive Date: 20160119
  Receipt Date: 20190226
  Transmission Date: 20190417
  Serious: Yes (Other)
  Sender: FDA-Public Use
  Company Number: IE-009507513-1601IRL003625

PATIENT
  Age: 39 Year
  Sex: Female

DRUGS (7)
  1. SUPRECUR [Suspect]
     Active Substance: BUSERELIN
     Indication: IN VITRO FERTILISATION
     Dosage: 2 SNIFFS, 4 TIME DAILY AT 8:00, 13:00, 18:00 AND 24:00
     Route: 045
     Dates: start: 20150110, end: 20150120
  2. PREGNYL [Suspect]
     Active Substance: CHORIOGONADOTROPIN ALFA
     Indication: IN VITRO FERTILISATION
     Dosage: 10000 IU DAILY
     Route: 058
     Dates: start: 20150120
  3. CLINDAMYCIN. [Concomitant]
     Active Substance: CLINDAMYCIN
     Indication: PRODUCT USED FOR UNKNOWN INDICATION
     Dosage: UNK
  4. PROGESTERONE. [Suspect]
     Active Substance: PROGESTERONE
     Indication: IN VITRO FERTILISATION
     Dosage: 100 MILLIGRAM, TID
     Route: 067
     Dates: start: 20150122, end: 20150207
  5. FLAGYL [Concomitant]
     Active Substance: METRONIDAZOLE\METRONIDAZOLE HYDROCHLORIDE
     Indication: PRODUCT USED FOR UNKNOWN INDICATION
     Dosage: 400 MG, TID
     Route: 048
     Dates: start: 20150122
  6. CIPROXIN [Concomitant]
     Active Substance: CIPROFLOXACIN
     Indication: PRODUCT USED FOR UNKNOWN INDICATION
     Dosage: 500 MG, BID
     Route: 048
     Dates: start: 20150122
  7. GONAL-F [Suspect]
     Active Substance: FOLLITROPIN
     Indication: IN VITRO FERTILISATION
     Dosage: UNK
     Route: 058
     Dates: start: 20150110, end: 20150119

REACTIONS (4)
  - Suprapubic pain [Recovered/Resolved]
  - Body temperature increased [Recovered/Resolved]
  - Malaise [Recovered/Resolved]
  - Ovarian cyst ruptured [Recovered/Resolved]

NARRATIVE: CASE EVENT DATE: 20150126
